FAERS Safety Report 9323826 (Version 3)
Quarter: 2013Q4

REPORT INFORMATION
  Report Type: Spontaneous
  Country: US (occurrence: US)
  Receive Date: 20130603
  Receipt Date: 20131111
  Transmission Date: 20140711
  Serious: Yes (Death, Hospitalization, Other)
  Sender: FDA-Public Use
  Company Number: US-ASTELLAS-2013US005668

PATIENT
  Age: 55 Year
  Sex: Male
  Weight: 72 kg

DRUGS (1)
  1. PROGRAF [Suspect]
     Indication: LUNG TRANSPLANT
     Dosage: 1 MG, BID
     Route: 048
     Dates: start: 20050112, end: 20131007

REACTIONS (34)
  - Off label use [Unknown]
  - Hospitalisation [Unknown]
  - Hypophagia [Unknown]
  - Malnutrition [Unknown]
  - Intervertebral disc protrusion [Unknown]
  - Coronary artery disease [Unknown]
  - Diaphragmatic paralysis [Unknown]
  - Diverticular perforation [Unknown]
  - Muscle atrophy [Unknown]
  - Erosive oesophagitis [Unknown]
  - Foot fracture [Unknown]
  - Iron deficiency anaemia [Unknown]
  - Osteoporosis [Unknown]
  - Respiratory failure [Unknown]
  - Gastrooesophageal reflux disease [Unknown]
  - Cytomegalovirus infection [Unknown]
  - Atrial fibrillation [Unknown]
  - Cardiac failure congestive [Unknown]
  - Tuberculosis [Recovered/Resolved]
  - Urinary tract infection bacterial [Unknown]
  - Bronchitis bacterial [Unknown]
  - Deep vein thrombosis [Unknown]
  - Fatigue [Unknown]
  - Fall [Unknown]
  - Oedema peripheral [Unknown]
  - Hyperlipidaemia [Unknown]
  - Hypertension [Unknown]
  - Nausea [Recovering/Resolving]
  - Obliterative bronchiolitis [Fatal]
  - Tonsil cancer [Fatal]
  - Non-small cell lung cancer [Fatal]
  - Metastatic squamous cell carcinoma [Fatal]
  - Skin cancer [Fatal]
  - Lung transplant rejection [Fatal]
